FAERS Safety Report 7611184-6 (Version None)
Quarter: 2011Q3

REPORT INFORMATION
  Report Type: 
  Country: None (occurrence: None)
  Receive Date: 20110715
  Receipt Date: 20110711
  Transmission Date: 20111222
  Serious: Yes (Life-Threatening, Hospitalization)
  Sender: FDA-Public Use
  Company Number: SY-AMGEN-SYRSP2011035494

PATIENT
  Age: 75 Year
  Sex: Female

DRUGS (7)
  1. ENBREL [Suspect]
     Indication: RHEUMATOID ARTHRITIS
     Dosage: 50 MG, WEEKLY
     Route: 058
     Dates: start: 20050101, end: 20110101
  2. TEGRETOL [Concomitant]
     Dosage: 400 UNK, UNK
     Route: 048
  3. DICLOFENAC [Concomitant]
     Dosage: 100 UNK, 1X/DAY
     Route: 048
  4. METFORMIN HCL [Concomitant]
     Dosage: 1500 MG, 1X/DAY
     Route: 048
  5. DIOVAN HCT [Concomitant]
     Dosage: 160125 UNK, 1X/DAY
     Route: 048
  6. METHOTREXATE [Concomitant]
     Dosage: 10 MG, WEEKLY
     Route: 048
  7. LOSARTAN [Concomitant]
     Dosage: UNK

REACTIONS (1)
  - BILE DUCT CANCER [None]
